FAERS Safety Report 4874334-0 (Version None)
Quarter: 2006Q1

REPORT INFORMATION
  Report Type: 
  Country: None (occurrence: None)
  Receive Date: 20060103
  Receipt Date: 20060103
  Transmission Date: 20060701
  Serious: No
  Sender: FDA-Public Use
  Company Number: None

PATIENT
  Age: 16 Year
  Sex: Female
  Weight: 58.9676 kg

DRUGS (2)
  1. AMNESTEEM [Suspect]
     Indication: ACNE CYSTIC
     Dosage: 1 DAILY PO
     Route: 048
     Dates: start: 20050805, end: 20050906
  2. AMNESTEEM [Suspect]
     Dosage: 1 DAILY PO
     Route: 048
     Dates: start: 20050901, end: 20050906

REACTIONS (4)
  - AFFECTIVE DISORDER [None]
  - ANOREXIA [None]
  - INSOMNIA [None]
  - IRRITABILITY [None]
